FAERS Safety Report 22636442 (Version 1)
Quarter: 2023Q2

REPORT INFORMATION
  Report Type: Spontaneous
  Country: US (occurrence: US)
  Receive Date: 20230623
  Receipt Date: 20230623
  Transmission Date: 20230722
  Serious: No
  Sender: FDA-Public Use
  Company Number: US-PFIZER INC-PV202300106735

PATIENT
  Sex: Male

DRUGS (1)
  1. PHENYTOIN [Suspect]
     Active Substance: PHENYTOIN
     Dosage: UNK

REACTIONS (1)
  - Drug ineffective [Unknown]
